FAERS Safety Report 25006681 (Version 1)
Quarter: 2025Q1

REPORT INFORMATION
  Report Type: Spontaneous
  Country: MM (occurrence: MM)
  Receive Date: 20250225
  Receipt Date: 20250225
  Transmission Date: 20250409
  Serious: Yes (Other)
  Sender: ROCHE
  Company Number: MM-ROCHE-10000216034

PATIENT
  Age: 41 Year
  Sex: Female

DRUGS (1)
  1. KADCYLA [Suspect]
     Active Substance: ADO-TRASTUZUMAB EMTANSINE
     Indication: Breast cancer
     Route: 042
     Dates: start: 20241106

REACTIONS (1)
  - Metastases to lung [Unknown]
